FAERS Safety Report 6138523-X (Version None)
Quarter: 2009Q1

REPORT INFORMATION
  Report Type: 
  Country: None (occurrence: None)
  Receive Date: 20090327
  Receipt Date: 20090327
  Transmission Date: 20090719
  Serious: No
  Sender: FDA-Public Use
  Company Number: None

PATIENT
  Age: 66 Year
  Sex: Male

DRUGS (2)
  1. HEPARIN SODIUM [Suspect]
     Dosage: 3300 UNIT BOLUS, HEPARIN 650 UNITS/HR
     Route: 040
     Dates: start: 20090309, end: 20090310
  2. HEPARIN SODIUM [Suspect]
     Dosage: 3300 UNIT BOLUS, HEPARIN 650 UNITS/HR
     Route: 040
     Dates: start: 20090309

REACTIONS (3)
  - BRONCHOSPASM [None]
  - DRUG SPECIFIC ANTIBODY PRESENT [None]
  - PLATELET COUNT DECREASED [None]
